FAERS Safety Report 13083426 (Version 1)
Quarter: 2017Q1

REPORT INFORMATION
  Report Type: Spontaneous
  Country: US (occurrence: US)
  Receive Date: 20170104
  Receipt Date: 20170104
  Transmission Date: 20170428
  Serious: Yes (Hospitalization, Other)
  Sender: FDA-Public Use
  Company Number: US-SHIRE-US201620356

PATIENT

DRUGS (1)
  1. VYVANSE [Suspect]
     Active Substance: LISDEXAMFETAMINE DIMESYLATE
     Indication: PRODUCT USED FOR UNKNOWN INDICATION
     Dosage: 15 MG (3), UNKNOWN
     Route: 048
     Dates: start: 20161223, end: 20161223

REACTIONS (11)
  - Hallucination [Unknown]
  - Adverse event [Unknown]
  - Thinking abnormal [Unknown]
  - Expired product administered [Recovered/Resolved]
  - Mental disorder [Unknown]
  - Mental impairment [Unknown]
  - Stress [Unknown]
  - Therapeutic response unexpected [Unknown]
  - Depression [Unknown]
  - Nervousness [Unknown]
  - Product use issue [Recovered/Resolved]

NARRATIVE: CASE EVENT DATE: 201612
